FAERS Safety Report 7315028-1 (Version None)
Quarter: 2011Q1

REPORT INFORMATION
  Report Type: 
  Country: None (occurrence: None)
  Receive Date: 20110225
  Receipt Date: 20100409
  Transmission Date: 20110831
  Serious: No
  Sender: FDA-Public Use
  Company Number: US-MYLANLABS-2010S1004184

PATIENT
  Age: 24 Year
  Sex: Female

DRUGS (2)
  1. AMNESTEEM [Suspect]
     Indication: ACNE
     Route: 048
     Dates: end: 20100310
  2. CLARAVIS [Suspect]
     Indication: ACNE
     Route: 048
     Dates: start: 20091229

REACTIONS (4)
  - DEPRESSION [None]
  - FATIGUE [None]
  - MOOD ALTERED [None]
  - IRRITABILITY [None]
